FAERS Safety Report 8579093-6 (Version None)
Quarter: 2012Q3

REPORT INFORMATION
  Report Type: 
  Country: None (occurrence: None)
  Receive Date: 20120808
  Receipt Date: 20120801
  Transmission Date: 20120928
  Serious: Yes (Other)
  Sender: FDA-Public Use
  Company Number: FR-PFIZER INC-2012188780

PATIENT
  Age: 70 Year
  Sex: Male

DRUGS (2)
  1. CLAVULANATE POTASSIUM [Suspect]
  2. VANCOMYCIN HCL [Suspect]
     Dosage: UNK

REACTIONS (2)
  - EOSINOPHILIA [None]
  - NEPHROPATHY [None]
